FAERS Safety Report 24106126 (Version 1)
Quarter: 2024Q3

REPORT INFORMATION
  Report Type: Report from Study
  Country: CA (occurrence: None)
  Receive Date: 20240717
  Receipt Date: 20240717
  Transmission Date: 20241016
  Serious: Yes (Other)
  Sender: ASTRAZENECA
  Company Number: 2024A056779

PATIENT
  Sex: Female

DRUGS (5)
  1. TEZSPIRE [Suspect]
     Active Substance: TEZEPELUMAB-EKKO
     Indication: Asthma
     Route: 058
     Dates: start: 20240109
  2. TEZSPIRE [Suspect]
     Active Substance: TEZEPELUMAB-EKKO
     Indication: Asthma
     Route: 058
     Dates: start: 20230214
  3. SPIRIVA RESPIMAT [Concomitant]
     Active Substance: TIOTROPIUM BROMIDE
  4. XOLAIR [Concomitant]
     Active Substance: OMALIZUMAB
  5. SYMBICORT [Concomitant]
     Active Substance: BUDESONIDE\FORMOTEROL FUMARATE DIHYDRATE
     Dosage: 200MCG, UNKNOWN UNKNOWN

REACTIONS (9)
  - Drug reaction with eosinophilia and systemic symptoms [Unknown]
  - Cough [Unknown]
  - Cardiomegaly [Unknown]
  - Arthralgia [Unknown]
  - Bursitis [Unknown]
  - Exostosis [Unknown]
  - Pain in extremity [Unknown]
  - Intentional product misuse [Unknown]
  - Drug ineffective [Unknown]
